FAERS Safety Report 17315388 (Version 2)
Quarter: 2020Q3

REPORT INFORMATION
  Report Type: Spontaneous
  Country: FR (occurrence: FR)
  Receive Date: 20200124
  Receipt Date: 20200708
  Transmission Date: 20201102
  Serious: Yes (Other)
  Sender: FDA-Public Use
  Company Number: FR-MYLANLABS-2020M1002621

PATIENT
  Age: 34 Year
  Sex: Female

DRUGS (2)
  1. ISENTRESS [Suspect]
     Active Substance: RALTEGRAVIR POTASSIUM
     Indication: HIV INFECTION
     Dosage: 2 DOSAGE FORM, QD, 1200MG
     Route: 048
     Dates: start: 20190926, end: 20190927
  2. EMTRICITABINE/TENOFOVIR DISOPROXIL FUMARATE [Suspect]
     Active Substance: EMTRICITABINE\TENOFOVIR DISOPROXIL FUMARATE
     Indication: HIV INFECTION
     Dosage: 1 DOSAGE FORM, QD
     Dates: start: 20190926, end: 20190927

REACTIONS (3)
  - Toxic skin eruption [Recovering/Resolving]
  - Off label use [Unknown]
  - Angioedema [Unknown]

NARRATIVE: CASE EVENT DATE: 201909
